FAERS Safety Report 7251255-X (Version None)
Quarter: 2011Q1

REPORT INFORMATION
  Report Type: 
  Country: None (occurrence: None)
  Receive Date: 20110128
  Receipt Date: 20110118
  Transmission Date: 20110831
  Serious: Yes (Hospitalization)
  Sender: FDA-Public Use
  Company Number: AU-JNJFOC-20100509782

PATIENT
  Sex: Male
  Weight: 180 kg

DRUGS (11)
  1. SULFASALAZINE [Concomitant]
  2. ASPIRIN [Concomitant]
  3. IKOREL [Concomitant]
  4. MORPHINE [Concomitant]
  5. MINAX [Concomitant]
  6. COVERSYL [Concomitant]
  7. CLARAC [Concomitant]
  8. METHOTREXATE [Concomitant]
  9. LIPITOR [Concomitant]
  10. SIMPONI [Suspect]
     Indication: ANKYLOSING SPONDYLITIS
     Route: 058
  11. SIMPONI [Suspect]
     Route: 058

REACTIONS (8)
  - NERVOUS SYSTEM DISORDER [None]
  - DRUG HYPERSENSITIVITY [None]
  - INAPPROPRIATE SCHEDULE OF DRUG ADMINISTRATION [None]
  - ANGINA PECTORIS [None]
  - PAIN [None]
  - INFLUENZA [None]
  - SENSORY DISTURBANCE [None]
  - THERAPEUTIC RESPONSE DECREASED [None]
